FAERS Safety Report 16478343 (Version 2)
Quarter: 2019Q4

REPORT INFORMATION
  Report Type: Spontaneous
  Country: QA (occurrence: QA)
  Receive Date: 20190626
  Receipt Date: 20191213
  Transmission Date: 20200122
  Serious: Yes (Other)
  Sender: FDA-Public Use
  Company Number: QA-ROCHE-2344287

PATIENT
  Age: 7 Year
  Sex: Female

DRUGS (2)
  1. SOMATROPIN. [Suspect]
     Active Substance: SOMATROPIN
     Route: 058
  2. SOMATROPIN. [Suspect]
     Active Substance: SOMATROPIN
     Indication: PYCNODYSOSTOSIS
     Route: 058

REACTIONS (1)
  - Idiopathic intracranial hypertension [Recovering/Resolving]
